FAERS Safety Report 8950479 (Version 2)
Quarter: 2013Q4

REPORT INFORMATION
  Report Type: Spontaneous
  Country: US (occurrence: US)
  Receive Date: 20121207
  Receipt Date: 20131223
  Transmission Date: 20140711
  Serious: Yes (Hospitalization, Other)
  Sender: FDA-Public Use
  Company Number: US-BAYER-2012-127286

PATIENT
  Age: 21 Year
  Sex: Female

DRUGS (6)
  1. YAZ [Suspect]
     Indication: CONTRACEPTION
  2. YASMIN [Suspect]
     Indication: CONTRACEPTION
  3. ADDERALL [Concomitant]
     Dosage: 20 MG, UNK
     Route: 048
  4. SEROQUEL [Concomitant]
     Dosage: 300 MG, UNK
     Route: 048
  5. VICODIN [Concomitant]
     Route: 048
  6. OXYCODONE [Concomitant]

REACTIONS (9)
  - Cholelithiasis [None]
  - Gallbladder disorder [None]
  - Cholecystitis chronic [None]
  - Pain [None]
  - Injury [None]
  - Emotional distress [None]
  - Anxiety [None]
  - Fear of disease [None]
  - Pain [None]
